FAERS Safety Report 19030552 (Version 2)
Quarter: 2021Q2

REPORT INFORMATION
  Report Type: Report from Study
  Country: FR (occurrence: FR)
  Receive Date: 20210319
  Receipt Date: 20210407
  Transmission Date: 20210717
  Serious: Yes (Other)
  Sender: FDA-Public Use
  Company Number: NVSC2021FR061744

PATIENT
  Age: 66 Year
  Sex: Female
  Weight: 63 kg

DRUGS (8)
  1. DAUNORUBICIN [Concomitant]
     Active Substance: DAUNORUBICIN
     Indication: ACUTE MYELOID LEUKAEMIA
     Dosage: 100 MG INDUCTION D1 TO D3
     Route: 042
     Dates: start: 20201119, end: 20201121
  2. DAUNORUBICIN [Concomitant]
     Active Substance: DAUNORUBICIN
     Dosage: 99.5 MG CONSO 1 D1
     Route: 042
     Dates: start: 20210113, end: 20210113
  3. ELTROMBOPAG [Suspect]
     Active Substance: ELTROMBOPAG
     Indication: ACUTE MYELOID LEUKAEMIA
     Dosage: UNK
     Route: 048
     Dates: start: 20201127, end: 20201213
  4. CYTARABINE. [Concomitant]
     Active Substance: CYTARABINE
     Indication: ACUTE MYELOID LEUKAEMIA
     Dosage: 170 MG EVERY 1 DAY(S) INDUCTION D1 TO D7
     Route: 058
     Dates: start: 20201119, end: 20201125
  5. DAUNORUBICIN [Concomitant]
     Active Substance: DAUNORUBICIN
     Dosage: 99.5 MG CONSO 2 D1
     Route: 042
     Dates: start: 20210219, end: 20210219
  6. CYTARABINE. [Concomitant]
     Active Substance: CYTARABINE
     Dosage: 166 MG EVERY 1 DAY(S) 83 X2/D CONSO 1 D1 TO D5
     Route: 058
     Dates: start: 20210113, end: 20210117
  7. CYTARABINE. [Concomitant]
     Active Substance: CYTARABINE
     Dosage: 166 MG EVERY 1 DAY(S) 83 X2/D CONSO 2 D1 TO D5
     Route: 058
     Dates: start: 20210219, end: 20210223
  8. LOMUSTINE. [Concomitant]
     Active Substance: LOMUSTINE
     Indication: ACUTE MYELOID LEUKAEMIA
     Dosage: 340 MG  EVERY 1 DAY(S) INDUCTION D1
     Route: 048
     Dates: start: 20201119, end: 20201119

REACTIONS (2)
  - Pulmonary embolism [Unknown]
  - Chromophobe renal cell carcinoma [Not Recovered/Not Resolved]

NARRATIVE: CASE EVENT DATE: 20201130
